FAERS Safety Report 18035951 (Version 1)
Quarter: 2020Q3

REPORT INFORMATION
  Report Type: Spontaneous
  Country: US (occurrence: US)
  Receive Date: 20200717
  Receipt Date: 20200717
  Transmission Date: 20201103
  Serious: No
  Sender: FDA-Public Use
  Company Number: US-BENUVIA THERAPEUTICS INC.-BEN202005-000023

PATIENT
  Age: 72 Year
  Sex: Male

DRUGS (3)
  1. APOKYN [Concomitant]
     Active Substance: APOMORPHINE HYDROCHLORIDE
  2. DRONABINOL. [Suspect]
     Active Substance: DRONABINOL
     Indication: VOMITING
     Dosage: UNKNOWN
     Dates: start: 2020, end: 2020
  3. TIGAN [Concomitant]
     Active Substance: TRIMETHOBENZAMIDE HYDROCHLORIDE

REACTIONS (2)
  - Loss of consciousness [Unknown]
  - Thinking abnormal [Unknown]

NARRATIVE: CASE EVENT DATE: 2020
